FAERS Safety Report 8607939-1 (Version None)
Quarter: 2012Q3

REPORT INFORMATION
  Report Type: 
  Country: None (occurrence: None)
  Receive Date: 20120821
  Receipt Date: 20120810
  Transmission Date: 20120928
  Serious: Yes (Death, Life-Threatening, Hospitalization)
  Sender: FDA-Public Use
  Company Number: PL-SANOFI-AVENTIS-2012SA051699

PATIENT
  Age: 64 Year
  Sex: Male

DRUGS (3)
  1. CABAZITAXEL [Suspect]
     Route: 042
     Dates: start: 20120704, end: 20120704
  2. PREDNISONE [Suspect]
     Indication: PROSTATE CANCER METASTATIC
     Route: 065
     Dates: start: 20120614
  3. CABAZITAXEL [Suspect]
     Indication: PROSTATE CANCER METASTATIC
     Route: 042
     Dates: start: 20120614, end: 20120614

REACTIONS (1)
  - DISSEMINATED INTRAVASCULAR COAGULATION [None]
